FAERS Safety Report 6162201-4 (Version None)
Quarter: 2009Q2

REPORT INFORMATION
  Report Type: 
  Country: None (occurrence: None)
  Receive Date: 20090421
  Receipt Date: 20070820
  Transmission Date: 20091009
  Serious: No
  Sender: FDA-Public Use
  Company Number: US-SOLVAY-00207033733

PATIENT
  Age: 14625 Day
  Sex: Female
  Weight: 59.5 kg

DRUGS (5)
  1. ANDROGEL [Suspect]
     Indication: ACCIDENTAL EXPOSURE
     Dosage: DAILY DOSE: 5 GRAM(S)
     Route: 062
     Dates: start: 20070510
  2. WELLBUTRIN [Concomitant]
     Indication: DEPRESSION
     Dosage: DAILY DOSE: 400 MILLIGRAM(S)
     Route: 048
     Dates: start: 20021001
  3. MULTI-VITAMINS [Concomitant]
     Indication: HYPOVITAMINOSIS
     Dosage: DAILY DOSE: 1 DOSAGE FORM
     Route: 048
  4. ALEVE [Concomitant]
     Indication: ILL-DEFINED DISORDER
     Dosage: DAILY DOSE:  TAKES AS NEEDED
     Route: 048
  5. CALTRATE PLUS D [Concomitant]
     Indication: CALCIUM DEFICIENCY
     Dosage: DAILY DOSE: 1 DOSAGE FORM
     Route: 048

REACTIONS (1)
  - VULVOVAGINAL MYCOTIC INFECTION [None]
